FAERS Safety Report 10020828 (Version 1)
Quarter: 2013Q4

REPORT INFORMATION
  Report Type: Spontaneous
  Country: BR (occurrence: None)
  Receive Date: 20131203
  Receipt Date: 20131203
  Transmission Date: 20140711
  Serious: Yes (Other)
  Sender: FDA-Public Use
  Company Number: ENTC2010-0188

PATIENT
  Age: 72 Year
  Sex: Female

DRUGS (4)
  1. STALEVO [Suspect]
     Indication: PARKINSON^S DISEASE
     Route: 048
     Dates: start: 2005
  2. LANSOPRAZOLE [Concomitant]
  3. PURAN T4 [Concomitant]
  4. COMPOSTO 46 [Concomitant]

REACTIONS (17)
  - Insomnia [None]
  - Somnolence [None]
  - Abnormal faeces [None]
  - Faeces discoloured [None]
  - Limb discomfort [None]
  - Petit mal epilepsy [None]
  - Hallucination [None]
  - Rash macular [None]
  - Back pain [None]
  - Occult blood [None]
  - Blood count abnormal [None]
  - Malaise [None]
  - Asthenia [None]
  - Dysstasia [None]
  - Muscular weakness [None]
  - Muscle spasms [None]
  - Urinary tract infection bacterial [None]
